FAERS Safety Report 18410461 (Version 6)
Quarter: 2020Q4

REPORT INFORMATION
  Report Type: Spontaneous
  Country: US (occurrence: US)
  Receive Date: 20201021
  Receipt Date: 20201223
  Transmission Date: 20210114
  Serious: Yes (Hospitalization, Other)
  Sender: FDA-Public Use
  Company Number: US-DSJP-DSU-2020-129976

PATIENT
  Age: 70 Year
  Sex: Male

DRUGS (2)
  1. ASPIRIN                            /00002701/ [Concomitant]
     Active Substance: ASPIRIN
     Indication: ATRIAL FIBRILLATION
     Dosage: 8 MG, QD
     Route: 048
     Dates: end: 20201013
  2. TURALIO [Suspect]
     Active Substance: PEXIDARTINIB HYDROCHLORIDE
     Indication: SOFT TISSUE NEOPLASM
     Dosage: 400 MG, BID
     Route: 048
     Dates: start: 20201007, end: 20201101

REACTIONS (13)
  - Disease progression [Unknown]
  - Asthenia [Recovered/Resolved]
  - Cough [Recovered/Resolved]
  - Fatigue [Recovered/Resolved]
  - Eructation [Recovered/Resolved]
  - Abdominal pain upper [Recovered/Resolved]
  - Dyspepsia [Recovered/Resolved]
  - Chest discomfort [Recovered/Resolved]
  - Haemoptysis [Recovered/Resolved]
  - Product odour abnormal [Recovered/Resolved]
  - Product taste abnormal [Recovered/Resolved]
  - Flatulence [Recovered/Resolved]
  - Wheezing [Recovered/Resolved]

NARRATIVE: CASE EVENT DATE: 2020
